FAERS Safety Report 9013068 (Version 2)
Quarter: 2013Q3

REPORT INFORMATION
  Report Type: Report from Study
  Country: JP (occurrence: JP)
  Receive Date: 20130115
  Receipt Date: 20130717
  Transmission Date: 20140515
  Serious: Yes (Hospitalization)
  Sender: FDA-Public Use
  Company Number: JP-009507513-1301JPN005386

PATIENT
  Age: 68 Year
  Sex: Female
  Weight: 57 kg

DRUGS (17)
  1. PEGINTRON [Suspect]
     Indication: CHRONIC HEPATITIS C
     Dosage: 1.5 MICROGRAM PER KILOGRAM, QW
     Route: 058
     Dates: start: 20120912, end: 20121101
  2. REBETOL [Suspect]
     Indication: CHRONIC HEPATITIS C
     Dosage: 400 MG, QD
     Route: 048
     Dates: start: 20120912, end: 20120913
  3. REBETOL [Suspect]
     Dosage: 200 MG, QD
     Route: 048
     Dates: start: 20120914, end: 20120917
  4. REBETOL [Suspect]
     Dosage: 400 MG, QD
     Route: 048
     Dates: start: 20120918, end: 20120924
  5. REBETOL [Suspect]
     Dosage: 200 MG, QD
     Route: 048
     Dates: start: 20120925, end: 20120925
  6. REBETOL [Suspect]
     Dosage: 400 MG, QD
     Route: 048
     Dates: start: 20120926, end: 20120926
  7. REBETOL [Suspect]
     Dosage: 200 MG, QD
     Route: 048
     Dates: start: 20120927, end: 20120927
  8. REBETOL [Suspect]
     Dosage: 200 MG, QD
     Route: 048
     Dates: start: 20120928, end: 20121107
  9. TELAVIC [Suspect]
     Indication: CHRONIC HEPATITIS C
     Dosage: 1500 MG, QD
     Route: 048
     Dates: start: 20120912, end: 20121101
  10. GASTER D [Concomitant]
     Indication: PROPHYLAXIS
     Dosage: 20 MICROGRAM, QD
     Route: 048
  11. AMLODIPINE BESYLATE [Concomitant]
     Indication: HYPERTENSION
     Dosage: 5 MG, QD
     Route: 048
  12. MYTEAR ANTIBIOTIC EYE DROPS [Concomitant]
     Indication: SJOGREN^S SYNDROME
     Dosage: Q.S/DAY
     Route: 047
     Dates: end: 20130128
  13. ONEALFA [Concomitant]
     Indication: PROPHYLAXIS
     Dosage: 0.25 MICROGRAM, QD
     Route: 048
     Dates: start: 20121107, end: 20121121
  14. ONEALFA [Concomitant]
     Indication: OSTEOGENESIS IMPERFECTA
  15. SANCOBA [Concomitant]
     Indication: SJOGREN^S SYNDROME
     Dosage: Q.S/DAY
     Route: 047
     Dates: start: 20130129
  16. REBAMIPIDE [Concomitant]
     Indication: PROPHYLAXIS
     Dosage: 100 MG/DAY, AS NEEDED
     Route: 048
  17. VOLTAREN [Concomitant]
     Indication: PROPHYLAXIS
     Dosage: 25 MG/DAY, AS NEEDED
     Route: 048

REACTIONS (2)
  - Drug eruption [Not Recovered/Not Resolved]
  - Drug eruption [Not Recovered/Not Resolved]
